FAERS Safety Report 4552552-9 (Version None)
Quarter: 2005Q1

REPORT INFORMATION
  Report Type: 
  Country: None (occurrence: None)
  Receive Date: 20050114
  Receipt Date: 20040823
  Transmission Date: 20050727
  Serious: No
  Sender: FDA-Public Use
  Company Number: US-GLAXOSMITHKLINE-A0523077A

PATIENT
  Age: 56 Year
  Sex: Female

DRUGS (7)
  1. IMITREX [Suspect]
     Indication: MIGRAINE
     Dosage: 6MG AS REQUIRED
     Route: 058
  2. FOSAMAX [Concomitant]
  3. NEXIUM [Concomitant]
  4. AMITRIPTYLINE [Concomitant]
  5. DEPAKOTE [Concomitant]
  6. LASIX [Concomitant]
  7. IMITREX [Concomitant]

REACTIONS (2)
  - CONTUSION [None]
  - DRUG INEFFECTIVE [None]
